FAERS Safety Report 6807683-7 (Version None)
Quarter: 2010Q2

REPORT INFORMATION
  Report Type: 
  Country: None (occurrence: None)
  Receive Date: 20100629
  Receipt Date: 20081117
  Transmission Date: 20101027
  Serious: No
  Sender: FDA-Public Use
  Company Number: US-PFIZER INC-2008089699

PATIENT
  Sex: Male

DRUGS (4)
  1. VIAGRA [Suspect]
  2. ALL OTHER THERAPEUTIC PRODUCTS [Concomitant]
  3. LORAZEPAM [Concomitant]
  4. BUPROPION HCL [Concomitant]

REACTIONS (2)
  - DRUG INEFFECTIVE [None]
  - ERECTILE DYSFUNCTION [None]
